FAERS Safety Report 8854871 (Version 1)
Quarter: 2012Q4

REPORT INFORMATION
  Report Type: 
  Country: US (occurrence: US)
  Receive Date: 20121023
  Receipt Date: 20121023
  Transmission Date: 20130627
  Serious: Yes (Hospitalization)
  Sender: FDA-Public Use
  Company Number: US-PFIZER INC-2012259780

PATIENT
  Age: 45 Year
  Sex: Female
  Weight: 75 kg

DRUGS (3)
  1. NEURONTIN [Suspect]
     Indication: FIBROMYALGIA
     Dosage: 300 mg, daily
     Dates: start: 201111
  2. NEURONTIN [Suspect]
     Indication: NEURALGIA
     Dosage: 600 mg, 1x/day
     Dates: start: 201112
  3. NEURONTIN [Suspect]
     Dosage: 900 mg, 1x/day
     Dates: end: 201205

REACTIONS (5)
  - Suicide attempt [Recovering/Resolving]
  - Suicidal ideation [Recovering/Resolving]
  - Depression [Recovering/Resolving]
  - Somnolence [Recovering/Resolving]
  - Mood altered [Recovering/Resolving]
